FAERS Safety Report 9876957 (Version 2)
Quarter: 2014Q1

REPORT INFORMATION
  Report Type: Spontaneous
  Country: NL (occurrence: None)
  Receive Date: 20140204
  Receipt Date: 20140212
  Transmission Date: 20141002
  Serious: Yes (Hospitalization)
  Sender: FDA-Public Use
  Company Number: AUR-APL-2014-01075

PATIENT
  Age: 64 Year
  Sex: Female

DRUGS (6)
  1. RAMIPRIL [Suspect]
     Indication: MITRAL VALVE INCOMPETENCE
     Dosage: 1DOSAGE FORMS, 1 D
     Route: 048
     Dates: start: 20131203, end: 20140109
  2. EZETIMIBE/SIMVASTATIN(INEGY) [Concomitant]
  3. PANTOPRAZOLE(PANTOPRAZOLE) [Concomitant]
  4. ACETYLSALICYLZUUR(ACETYLSALICYLIC ACID) [Concomitant]
  5. CLOPIDOGREL(CLOPIDOGREL) [Concomitant]
  6. METOPROLOL(METOPROLOL) [Concomitant]

REACTIONS (4)
  - Fear [None]
  - Nausea [None]
  - Chest discomfort [None]
  - Catheterisation cardiac [None]
